FAERS Safety Report 8032406-6 (Version None)
Quarter: 2011Q4

REPORT INFORMATION
  Report Type: 
  Country: None (occurrence: None)
  Receive Date: 20111202
  Receipt Date: 20111102
  Transmission Date: 20120403
  Serious: No
  Sender: FDA-Public Use
  Company Number: PHEH2011US08499

PATIENT
  Age: 50 Year
  Sex: Female
  Weight: 104.8 kg

DRUGS (3)
  1. TRILEPTAL [Concomitant]
  2. FANAPT [Suspect]
     Indication: BIPOLAR DISORDER
     Dosage: 8 MG, BID, ORAL
     Route: 048
     Dates: start: 20111018, end: 20111024
  3. TRAZODONE HCL [Concomitant]

REACTIONS (8)
  - HEAD DISCOMFORT [None]
  - INSOMNIA [None]
  - DYSKINESIA [None]
  - DISCOMFORT [None]
  - HEADACHE [None]
  - MUSCLE CONTRACTIONS INVOLUNTARY [None]
  - MUSCULOSKELETAL STIFFNESS [None]
  - NAUSEA [None]
